FAERS Safety Report 13090001 (Version 2)
Quarter: 2017Q1

REPORT INFORMATION
  Report Type: Report from Study
  Country: JP (occurrence: JP)
  Receive Date: 20170105
  Receipt Date: 20170317
  Transmission Date: 20170428
  Serious: Yes (Death, Life-Threatening, Hospitalization, Other)
  Sender: FDA-Public Use
  Company Number: PHJP2016JP038218

PATIENT
  Age: 69 Year
  Sex: Male

DRUGS (43)
  1. THALED [Suspect]
     Active Substance: THALIDOMIDE
     Indication: MALIGNANT NEOPLASM PROGRESSION
     Dosage: 100 MG, QD
     Route: 048
     Dates: start: 20151104, end: 20151130
  2. BAKTAR [Concomitant]
     Active Substance: SULFAMETHOXAZOLE\TRIMETHOPRIM
     Indication: PROPHYLAXIS
     Dosage: 1 DF, UNK
     Route: 048
     Dates: end: 20151109
  3. ASPARA-CA [Concomitant]
     Active Substance: CALCIUM ASPARTATE
     Indication: HYPOCALCAEMIA
     Dosage: 600 MG, UNK
     Route: 048
     Dates: end: 20151109
  4. KALIMATE [Concomitant]
     Active Substance: CALCIUM POLYSTYRENE SULFONATE
     Dosage: 30 G, UNK
     Route: 048
     Dates: start: 20151111, end: 20151114
  5. NOVOLIN 30R [Suspect]
     Active Substance: INSULIN HUMAN
     Indication: DIABETES MELLITUS
     Dosage: 2 TO 14 IU, UNK
     Route: 065
  6. ENDOXAN [Suspect]
     Active Substance: CYCLOPHOSPHAMIDE
     Indication: PLASMA CELL MYELOMA
     Dosage: 600 MG, UNK
     Route: 065
     Dates: start: 20151110, end: 20151110
  7. CISPLATIN. [Suspect]
     Active Substance: CISPLATIN
     Indication: PLASMA CELL MYELOMA
     Dosage: UNK
     Route: 041
  8. CISPLATIN. [Suspect]
     Active Substance: CISPLATIN
     Indication: MALIGNANT NEOPLASM PROGRESSION
     Dosage: 7 MG, UNK
     Route: 041
     Dates: start: 20151110, end: 20151110
  9. FUROSEMIDE. [Suspect]
     Active Substance: FUROSEMIDE
     Indication: ELECTROLYTE IMBALANCE
  10. SOLU-MEDROL [Suspect]
     Active Substance: METHYLPREDNISOLONE SODIUM SUCCINATE
     Indication: FEBRILE NEUTROPENIA
     Dosage: 80 MG, QD
     Route: 065
     Dates: start: 20151125
  11. INSULIN [Suspect]
     Active Substance: INSULIN NOS
     Indication: HYPERGLYCAEMIA
     Dosage: UNK
     Route: 065
  12. CUBICIN [Suspect]
     Active Substance: DAPTOMYCIN
     Indication: ENTEROCOCCAL INFECTION
     Dosage: 282 MG, UNK
     Route: 065
     Dates: start: 20151202, end: 20151202
  13. VICCLOX [Concomitant]
     Active Substance: ACYCLOVIR SODIUM
     Indication: PROPHYLAXIS
     Dosage: 200 MG, UNK
     Route: 048
     Dates: end: 20151130
  14. ASPARA-CA [Concomitant]
     Active Substance: CALCIUM ASPARTATE
     Indication: OSTEOPOROSIS
     Dosage: 600 MG, UNK
     Dates: start: 20151120, end: 20151129
  15. CALFINA [Concomitant]
     Active Substance: ALFACALCIDOL
     Indication: OSTEOPOROSIS
     Dosage: 1.0 UG, UNK
     Route: 048
     Dates: end: 20151109
  16. IRRADIATED RED BLOOD CELLS-LEUKOCYTES REDUCED [Concomitant]
     Indication: PLASMA CELL MYELOMA
  17. NOVOLIN 30R [Suspect]
     Active Substance: INSULIN HUMAN
     Indication: DIABETES MELLITUS
  18. ETOPOSIDE. [Suspect]
     Active Substance: ETOPOSIDE
     Indication: PLASMA CELL MYELOMA
     Dosage: 60 MG, UNK
     Route: 041
     Dates: start: 20151110, end: 20151110
  19. ETOPOSIDE. [Suspect]
     Active Substance: ETOPOSIDE
     Indication: MALIGNANT NEOPLASM PROGRESSION
  20. FUROSEMIDE. [Suspect]
     Active Substance: FUROSEMIDE
     Indication: RENAL IMPAIRMENT
  21. ALPHA-ARBUTIN [Concomitant]
     Indication: ANXIETY DISORDER
     Dosage: 0.4 MG, UNK
     Route: 048
     Dates: end: 20151129
  22. BUFFERIN A [Concomitant]
     Indication: PERIPHERAL ARTERIAL OCCLUSIVE DISEASE
     Dosage: 81 MG, UNK
     Route: 048
     Dates: end: 20151109
  23. SOLU-MEDROL [Suspect]
     Active Substance: METHYLPREDNISOLONE SODIUM SUCCINATE
     Indication: BLOOD LACTATE DEHYDROGENASE INCREASED
     Dosage: 125 MG, UNK
     Route: 065
     Dates: start: 20151115, end: 20151124
  24. DECADRON [Suspect]
     Active Substance: DEXAMETHASONE
     Indication: MALIGNANT NEOPLASM PROGRESSION
     Dosage: 40 MG, UNK
     Route: 048
     Dates: start: 20151110, end: 20151112
  25. CALFINA [Concomitant]
     Active Substance: ALFACALCIDOL
     Indication: HYPOCALCAEMIA
     Dosage: 1.0 UG, UNK
     Route: 048
     Dates: start: 20151124, end: 20151129
  26. KALIMATE [Concomitant]
     Active Substance: CALCIUM POLYSTYRENE SULFONATE
     Indication: PRODUCT USED FOR UNKNOWN INDICATION
     Dosage: 30 G, UNK
     Route: 054
     Dates: start: 20151110, end: 20151110
  27. ARGAMATE [Concomitant]
     Active Substance: CALCIUM POLYSTYRENE SULFONATE
     Indication: PRODUCT USED FOR UNKNOWN INDICATION
     Dosage: 75 G, UNK
     Route: 048
     Dates: start: 20151109, end: 20151110
  28. FARYDAK [Suspect]
     Active Substance: PANOBINOSTAT
     Indication: PLASMA CELL MYELOMA
     Dosage: 20 MG, QD
     Route: 048
     Dates: start: 20151006, end: 20151101
  29. VELCADE [Suspect]
     Active Substance: BORTEZOMIB
     Indication: PLASMA CELL MYELOMA
     Dosage: 1.3 MG/M2, QW
     Route: 058
     Dates: start: 20151006, end: 20151028
  30. DECADRON [Suspect]
     Active Substance: DEXAMETHASONE
     Indication: PLASMA CELL MYELOMA
     Dosage: 20 MG, UNK
     Route: 048
     Dates: start: 20151006, end: 20151029
  31. ZOLAM [Concomitant]
     Active Substance: ALPRAZOLAM
     Indication: INSOMNIA
     Dosage: 0.25 MG, UNK
     Route: 048
     Dates: end: 20151129
  32. ASPARA-CA [Concomitant]
     Active Substance: CALCIUM ASPARTATE
     Indication: PRODUCT USED FOR UNKNOWN INDICATION
  33. JUVELA N [Concomitant]
     Active Substance: TOCOPHERYL NICOTINATE, D-.ALPHA.
     Indication: NEUROPATHY PERIPHERAL
     Dosage: 300 MG, UNK
     Route: 048
     Dates: end: 20151028
  34. NOVOLIN 30R [Suspect]
     Active Substance: INSULIN HUMAN
     Indication: HYPERGLYCAEMIA
  35. ENDOXAN [Suspect]
     Active Substance: CYCLOPHOSPHAMIDE
     Indication: MALIGNANT NEOPLASM PROGRESSION
  36. METHYCOBAL [Concomitant]
     Active Substance: METHYLCOBALAMIN
     Indication: NEUROPATHY PERIPHERAL
     Dosage: 500 MG, UNK
     Route: 048
     Dates: end: 20151028
  37. THALED [Suspect]
     Active Substance: THALIDOMIDE
     Indication: PLASMA CELL MYELOMA
     Dosage: 100 MG, QD
     Route: 048
     Dates: start: 20151005, end: 20151101
  38. FUROSEMIDE. [Suspect]
     Active Substance: FUROSEMIDE
     Indication: HYPERPHOSPHATAEMIA
     Dosage: 120 MG, QD
     Route: 065
     Dates: start: 20151109
  39. FUROSEMIDE. [Suspect]
     Active Substance: FUROSEMIDE
     Indication: RENAL FAILURE
  40. SOLU-MEDROL [Suspect]
     Active Substance: METHYLPREDNISOLONE SODIUM SUCCINATE
     Indication: PNEUMONIA
  41. BITAFANT TOWA [Concomitant]
     Indication: NEUROPATHY PERIPHERAL
     Dosage: 75 MG, UNK
     Route: 048
     Dates: start: 20151028, end: 20151104
  42. IRRADIATED RED BLOOD CELLS-LEUKOCYTES REDUCED [Concomitant]
     Indication: PLATELET COUNT DECREASED
     Dosage: 280 ML, QD
     Route: 065
     Dates: start: 20151110, end: 20151120
  43. IRRADIATED RED BLOOD CELLS-LEUKOCYTES REDUCED [Concomitant]
     Indication: ANAEMIA

REACTIONS (40)
  - Pyrexia [Unknown]
  - Neutrophil count decreased [Not Recovered/Not Resolved]
  - Blood lactate dehydrogenase increased [Not Recovered/Not Resolved]
  - Enterococcal infection [Not Recovered/Not Resolved]
  - Bradycardia [Unknown]
  - Arrhythmia [Unknown]
  - Malaise [Not Recovered/Not Resolved]
  - Nausea [Recovering/Resolving]
  - Malignant neoplasm progression [Fatal]
  - Hyperphosphataemia [Recovered/Resolved]
  - Febrile neutropenia [Not Recovered/Not Resolved]
  - Oxygen saturation decreased [Recovered/Resolved]
  - Abdominal pain [Unknown]
  - Plasma cell myeloma [Fatal]
  - Electrolyte imbalance [Not Recovered/Not Resolved]
  - Diabetes mellitus [Not Recovered/Not Resolved]
  - Blood creatinine increased [Unknown]
  - Hyperuricaemia [Unknown]
  - Platelet count decreased [Not Recovered/Not Resolved]
  - Thirst [Unknown]
  - Renal impairment [Not Recovered/Not Resolved]
  - Hepatic function abnormal [Recovered/Resolved]
  - Pneumonia [Not Recovered/Not Resolved]
  - Anaemia [Not Recovered/Not Resolved]
  - Sinus arrest [Unknown]
  - General physical health deterioration [Fatal]
  - Hyperuricaemia [Recovered/Resolved]
  - Systemic mycosis [Not Recovered/Not Resolved]
  - Dysphagia [Not Recovered/Not Resolved]
  - Pyrexia [Unknown]
  - Abdominal pain upper [Recovering/Resolving]
  - Hypercalcaemia [Unknown]
  - Pancytopenia [Fatal]
  - Blood potassium decreased [Recovered/Resolved]
  - Hyperglycaemia [Unknown]
  - Renal failure [Not Recovered/Not Resolved]
  - Hypocalcaemia [Recovered/Resolved]
  - Inflammation [Unknown]
  - Loss of consciousness [Recovered/Resolved]
  - Tachycardia [Unknown]

NARRATIVE: CASE EVENT DATE: 20151006
